FAERS Safety Report 8603601-X (Version None)
Quarter: 2012Q3

REPORT INFORMATION
  Report Type: 
  Country: None (occurrence: None)
  Receive Date: 20120817
  Receipt Date: 20120809
  Transmission Date: 20120928
  Serious: Yes (Hospitalization)
  Sender: FDA-Public Use
  Company Number: JP-ROCHE-1100063

PATIENT
  Sex: Female

DRUGS (27)
  1. ACTEMRA [Suspect]
     Route: 041
     Dates: start: 20100608, end: 20100608
  2. ACTEMRA [Suspect]
     Route: 041
     Dates: start: 20110215, end: 20110215
  3. PROGRAF [Concomitant]
     Route: 048
     Dates: end: 20091124
  4. ACTEMRA [Suspect]
     Route: 041
     Dates: start: 20100706, end: 20100706
  5. ACTEMRA [Suspect]
     Route: 041
     Dates: start: 20110118, end: 20110118
  6. ACTEMRA [Suspect]
     Route: 041
     Dates: start: 20110510, end: 20110510
  7. ACTEMRA [Suspect]
     Indication: RHEUMATOID ARTHRITIS
     Route: 041
     Dates: start: 20090707, end: 20090707
  8. ACTEMRA [Suspect]
     Route: 041
     Dates: start: 20090929, end: 20090929
  9. ACTEMRA [Suspect]
     Route: 041
     Dates: start: 20100316, end: 20100316
  10. ACTEMRA [Suspect]
     Route: 041
     Dates: start: 20100413, end: 20100413
  11. ACTEMRA [Suspect]
     Route: 041
     Dates: start: 20101221, end: 20101221
  12. ACTEMRA [Suspect]
     Route: 041
     Dates: start: 20110315, end: 20110315
  13. ACTEMRA [Suspect]
     Route: 041
     Dates: start: 20100119, end: 20100119
  14. ACTEMRA [Suspect]
     Route: 041
     Dates: start: 20100511, end: 20100511
  15. ACTEMRA [Suspect]
     Route: 041
     Dates: start: 20101026, end: 20101026
  16. ACTEMRA [Suspect]
     Route: 041
     Dates: start: 20110412, end: 20110412
  17. ACTEMRA [Suspect]
     Route: 041
     Dates: start: 20110607, end: 20110607
  18. ACTEMRA [Suspect]
     Route: 041
     Dates: start: 20110705
  19. ACTEMRA [Suspect]
     Route: 041
     Dates: start: 20090901, end: 20090901
  20. ACTEMRA [Suspect]
     Route: 041
     Dates: start: 20091027, end: 20091027
  21. ACTEMRA [Suspect]
     Route: 041
     Dates: start: 20100803, end: 20100803
  22. ACTEMRA [Suspect]
     Route: 041
     Dates: start: 20100928, end: 20100928
  23. ACTEMRA [Suspect]
     Route: 041
     Dates: start: 20091124, end: 20091124
  24. ACTEMRA [Suspect]
     Route: 041
     Dates: start: 20100831, end: 20100831
  25. ACTEMRA [Suspect]
     Route: 041
     Dates: start: 20090804, end: 20090804
  26. ACTEMRA [Suspect]
     Route: 041
     Dates: start: 20091222, end: 20091222
  27. ACTEMRA [Suspect]
     Route: 041
     Dates: start: 20100216, end: 20100216

REACTIONS (4)
  - SEPTIC SHOCK [None]
  - CHOLANGITIS SUPPURATIVE [None]
  - CHOLELITHIASIS [None]
  - STRESS CARDIOMYOPATHY [None]
